FAERS Safety Report 25403698 (Version 1)
Quarter: 2025Q2

REPORT INFORMATION
  Report Type: Spontaneous
  Country: JP (occurrence: JP)
  Receive Date: 20250605
  Receipt Date: 20250605
  Transmission Date: 20250717
  Serious: Yes (Other)
  Sender: JAZZ
  Company Number: JP-JAZZ PHARMACEUTICALS-2024-JP-023996

PATIENT
  Age: 26 Year
  Sex: Female

DRUGS (3)
  1. VYXEOS [Suspect]
     Active Substance: CYTARABINE\DAUNORUBICIN
     Indication: Acute myeloid leukaemia
     Route: 042
     Dates: start: 20241128, end: 20241130
  2. CYTARABINE [Suspect]
     Active Substance: CYTARABINE
     Indication: Acute myeloid leukaemia
     Route: 042
  3. IDAMYCIN [Suspect]
     Active Substance: IDARUBICIN HYDROCHLORIDE
     Indication: Acute myeloid leukaemia
     Route: 042

REACTIONS (6)
  - Acute myeloid leukaemia recurrent [Unknown]
  - Cytopenia [Recovering/Resolving]
  - Myelosuppression [Unknown]
  - Rash [Recovered/Resolved]
  - Platelet count decreased [Unknown]
  - Rash [Unknown]

NARRATIVE: CASE EVENT DATE: 20241206
